FAERS Safety Report 12844779 (Version 2)
Quarter: 2016Q4

REPORT INFORMATION
  Report Type: Report from Study
  Country: US (occurrence: US)
  Receive Date: 20161013
  Receipt Date: 20161028
  Transmission Date: 20170207
  Serious: Yes (Death, Other)
  Sender: FDA-Public Use
  Company Number: US-AMGEN-USASL2016140399

PATIENT
  Age: 77 Year
  Sex: Female
  Weight: 53.97 kg

DRUGS (1)
  1. REPATHA [Suspect]
     Active Substance: EVOLOCUMAB
     Indication: HYPERLIPIDAEMIA
     Dosage: 140 MG, Q2WK
     Route: 030
     Dates: start: 20160301

REACTIONS (5)
  - Aortic aneurysm rupture [Unknown]
  - Cardiac arrest [Fatal]
  - Incorrect route of drug administration [Unknown]
  - Cerebrovascular accident [Unknown]
  - Off label use [Unknown]

NARRATIVE: CASE EVENT DATE: 20160301
